FAERS Safety Report 4730276-2 (Version None)
Quarter: 2005Q3

REPORT INFORMATION
  Report Type: 
  Country: None (occurrence: None)
  Receive Date: 20050801
  Receipt Date: 20050721
  Transmission Date: 20060218
  Serious: Yes (Hospitalization)
  Sender: FDA-Public Use
  Company Number: BR-ROCHE-411825

PATIENT
  Age: 27 Year
  Sex: Female
  Weight: 58 kg

DRUGS (2)
  1. ROACUTAN [Suspect]
     Indication: ACNE
     Route: 048
     Dates: start: 20050715, end: 20050715
  2. DIANE 35 [Concomitant]
     Indication: CONTRACEPTION
     Route: 048

REACTIONS (2)
  - HEADACHE [None]
  - TONSILLITIS [None]
